FAERS Safety Report 16627811 (Version 2)
Quarter: 2020Q1

REPORT INFORMATION
  Report Type: Spontaneous
  Country: US (occurrence: US)
  Receive Date: 20190724
  Receipt Date: 20200320
  Transmission Date: 20200409
  Serious: Yes (Death, Disabling, Other)
  Sender: FDA-Public Use
  Company Number: US-MYLANLABS-2019M1068912

PATIENT
  Age: 63 Year
  Sex: Male
  Weight: 110.67 kg

DRUGS (34)
  1. METOPROLOL TARTRATE. [Concomitant]
     Active Substance: METOPROLOL TARTRATE
     Dosage: 12.5 MILLIGRAM, BID
     Route: 048
  2. PROTONIX                           /00661201/ [Concomitant]
     Active Substance: OMEPRAZOLE
     Dosage: UNK
     Route: 048
  3. DEXTROSE. [Concomitant]
     Active Substance: DEXTROSE
     Dosage: UNK, QD
     Route: 042
  4. ATIVAN [Concomitant]
     Active Substance: LORAZEPAM
     Indication: DYSKINESIA
     Dosage: 1 MILLIGRAM, Q4H
     Dates: start: 20160926
  5. PROMETHAZINE [Concomitant]
     Active Substance: PROMETHAZINE HYDROCHLORIDE
     Indication: VOMITING
  6. EFFIENT [Concomitant]
     Active Substance: PRASUGREL HYDROCHLORIDE
     Indication: BLOOD DISORDER PROPHYLAXIS
     Dosage: 10 MILLIGRAM, QD
     Route: 048
     Dates: start: 20150404, end: 20160525
  7. LISINOPRIL. [Concomitant]
     Active Substance: LISINOPRIL
     Indication: HYPERTENSION
     Dosage: 10 MILLIGRAM, QD
     Dates: start: 20100101, end: 20160531
  8. METFORMIN [Concomitant]
     Active Substance: METFORMIN HYDROCHLORIDE
     Indication: DIABETES MELLITUS
     Dosage: 500 MILLIGRAM, BID
     Dates: start: 20150831, end: 20151201
  9. ASPIRIN                            /00002701/ [Concomitant]
     Active Substance: ASPIRIN
     Dosage: UNK UNK, QD
     Route: 048
  10. HYDROCODONE/ACETAMINOPHEN [Concomitant]
     Active Substance: ACETAMINOPHEN\HYDROCODONE
     Dosage: UNK UNK, PRN
     Route: 048
  11. SCOPOLAMINE                        /00008701/ [Concomitant]
     Active Substance: SCOPOLAMINE
     Indication: VOMITING
  12. LIPITOR [Concomitant]
     Active Substance: ATORVASTATIN CALCIUM
     Indication: HYPERLIPIDAEMIA
  13. MS CONTIN [Concomitant]
     Active Substance: MORPHINE SULFATE
     Dosage: UNK UNK, BID
     Route: 048
  14. PROCHLORPERAZINE MALEATE. [Concomitant]
     Active Substance: PROCHLORPERAZINE MALEATE
     Dosage: 10 MILLIGRAM, QID
     Route: 048
  15. RESTORIL [Concomitant]
     Active Substance: TEMAZEPAM
     Dosage: UNK UNK, PM
     Route: 048
  16. ATIVAN [Concomitant]
     Active Substance: LORAZEPAM
     Indication: ANXIETY
  17. VALSARTAN. [Suspect]
     Active Substance: VALSARTAN
     Indication: HYPERTENSION
     Dosage: 160 MILLIGRAM, QD
     Dates: start: 20140421, end: 20160301
  18. METOPROLOL. [Concomitant]
     Active Substance: METOPROLOL
     Indication: HYPERTENSION
     Dosage: 25 MILLIGRAM, BID
     Dates: start: 20150414, end: 20160531
  19. ABHR [Concomitant]
     Dosage: UNK UNK, TID
     Route: 061
  20. SODIUM CHLORIDE. [Concomitant]
     Active Substance: SODIUM CHLORIDE
     Dosage: 1000 MILLILITER, QD
     Route: 042
  21. LIPITOR [Concomitant]
     Active Substance: ATORVASTATIN CALCIUM
     Indication: HYPERTENSION
     Dosage: 20 MILLIGRAM, QD
     Route: 048
     Dates: start: 20150414, end: 20160821
  22. PANTOPRAZOLE SODIUM. [Concomitant]
     Active Substance: PANTOPRAZOLE SODIUM
     Dosage: 40 MILLIGRAM, QD
  23. ZOFRAN [Concomitant]
     Active Substance: ONDANSETRON HYDROCHLORIDE
     Dosage: 4 MILLIGRAM, BID
     Route: 048
  24. PROMETHAZINE [Concomitant]
     Active Substance: PROMETHAZINE HYDROCHLORIDE
     Indication: NAUSEA
     Dosage: UNK
  25. NORCO [Concomitant]
     Active Substance: ACETAMINOPHEN\HYDROCODONE BITARTRATE
     Indication: PAIN
     Dosage: UNK
     Dates: start: 20160906
  26. FENTANYL. [Concomitant]
     Active Substance: FENTANYL
     Dosage: UNK  Q 72 HOURS
     Route: 062
  27. ELOXATIN [Concomitant]
     Active Substance: OXALIPLATIN
     Dosage: 200 MILLIGRAM, QD
     Route: 042
  28. ATIVAN [Concomitant]
     Active Substance: LORAZEPAM
     Indication: AGITATION
     Dosage: 0.5 MILLIGRAM, Q2H
     Dates: start: 20160927
  29. MORPHINE [Concomitant]
     Active Substance: MORPHINE
     Indication: PAIN
     Dosage: UNK
     Dates: start: 20160925
  30. SCOPOLAMINE                        /00008701/ [Concomitant]
     Active Substance: SCOPOLAMINE
     Indication: NAUSEA
     Dosage: UNK Q72 HRS
     Route: 062
  31. MEGACE ORAL [Concomitant]
     Dosage: 20 MILLILITER, QD
     Route: 048
  32. LACTULOSE. [Concomitant]
     Active Substance: LACTULOSE
     Dosage: 20 MILLILITER, Q2H   PRN
     Route: 048
  33. SPIRONOLACTONE. [Concomitant]
     Active Substance: SPIRONOLACTONE
     Dosage: 100 MILLIGRAM, BID
     Route: 048
  34. GEMCITABINE. [Concomitant]
     Active Substance: GEMCITABINE
     Dosage: 2000 MILLIGRAM, QD
     Route: 042

REACTIONS (10)
  - Hepatic cancer [Fatal]
  - Emotional distress [Unknown]
  - Depression [Unknown]
  - Renal cancer [Fatal]
  - Pancreatic carcinoma [Fatal]
  - Metastases to lung [Unknown]
  - Bile duct cancer [Fatal]
  - Retroperitoneum cyst [Unknown]
  - Anxiety [Unknown]
  - Recalled product administered [Unknown]

NARRATIVE: CASE EVENT DATE: 20160705
